FAERS Safety Report 12949816 (Version 1)
Quarter: 2016Q4

REPORT INFORMATION
  Report Type: Spontaneous
  Country: CA (occurrence: CA)
  Receive Date: 20161117
  Receipt Date: 20161117
  Transmission Date: 20170207
  Serious: Yes (Other)
  Sender: FDA-Public Use
  Company Number: CA-009507513-1510CAN010896

PATIENT
  Age: 47 Year
  Sex: Male

DRUGS (3)
  1. INTRON A [Suspect]
     Active Substance: INTERFERON ALFA-2B
     Dosage: 4 MILLION IU, TIW
     Route: 058
     Dates: start: 201408
  2. INTRON A [Suspect]
     Active Substance: INTERFERON ALFA-2B
     Indication: MYCOSIS FUNGOIDES
     Dosage: 5 MILLION IU, TIW
     Route: 058
     Dates: start: 20121116
  3. INTRON A [Suspect]
     Active Substance: INTERFERON ALFA-2B
     Dosage: 3 MILLION IU, TIW
     Route: 058
     Dates: start: 201408

REACTIONS (3)
  - Mycosis fungoides recurrent [Unknown]
  - Weight decreased [Not Recovered/Not Resolved]
  - Malaise [Not Recovered/Not Resolved]

NARRATIVE: CASE EVENT DATE: 201408
